FAERS Safety Report 6224218-0 (Version None)
Quarter: 2009Q2

REPORT INFORMATION
  Report Type: 
  Country: None (occurrence: None)
  Receive Date: 20090612
  Receipt Date: 20090311
  Transmission Date: 20091009
  Serious: No
  Sender: FDA-Public Use
  Company Number: US-ABBOTT-09P-163-0562248-00

PATIENT
  Sex: Female
  Weight: 70.824 kg

DRUGS (13)
  1. HUMIRA [Suspect]
     Indication: OSTEOARTHRITIS
     Route: 058
     Dates: start: 20090306
  2. HUMIRA [Suspect]
     Indication: RHEUMATOID ARTHRITIS
  3. METHOTREXATE [Concomitant]
     Indication: RHEUMATOID ARTHRITIS
     Route: 048
  4. METHOTREXATE [Concomitant]
     Indication: OSTEOARTHRITIS
  5. METHOTREXATE [Concomitant]
     Indication: SYSTEMIC LUPUS ERYTHEMATOSUS
  6. PREDNISONE [Concomitant]
     Indication: RHEUMATOID ARTHRITIS
     Route: 048
  7. PREDNISONE [Concomitant]
     Indication: OSTEOARTHRITIS
  8. PREDNISONE [Concomitant]
     Indication: SYSTEMIC LUPUS ERYTHEMATOSUS
  9. LOTREL [Concomitant]
     Indication: HYPERTENSION
     Dosage: 5/20 MG
     Route: 048
  10. LORITAB [Concomitant]
     Indication: PAIN
     Route: 048
  11. ERGOCALCIFEROL [Concomitant]
     Indication: MEDICAL DIET
     Route: 048
  12. GABAPENTIN [Concomitant]
     Indication: SYSTEMIC LUPUS ERYTHEMATOSUS
  13. CALCIUM CARBONATE [Concomitant]
     Indication: MINERAL SUPPLEMENTATION
     Route: 048

REACTIONS (3)
  - INJECTION SITE ERYTHEMA [None]
  - INJECTION SITE IRRITATION [None]
  - INJECTION SITE PAIN [None]
